FAERS Safety Report 7997320 (Version 3)
Quarter: 2015Q3

REPORT INFORMATION
  Report Type: Spontaneous
  Country: JP (occurrence: JP)
  Receive Date: 20110620
  Receipt Date: 20150928
  Transmission Date: 20151125
  Serious: Yes (Hospitalization, Other)
  Sender: FDA-Public Use
  Company Number: JP-ASTELLAS-2011JP003407

PATIENT
  Age: 4 Year
  Sex: Female
  Weight: 15 kg

DRUGS (22)
  1. PROGRAF [Suspect]
     Active Substance: TACROLIMUS\TACROLIMUS ANHYDROUS
     Indication: CONGENITAL ABSENCE OF BILE DUCTS
     Dosage: 0.2 MG, TWICE DAILY
     Route: 048
     Dates: start: 20070605
  2. PYRINAZIN [Concomitant]
     Active Substance: ACETAMINOPHEN
     Indication: UPPER RESPIRATORY TRACT INFLAMMATION
  3. MUCODYNE [Concomitant]
     Active Substance: CARBOCYSTEINE
     Indication: UPPER RESPIRATORY TRACT INFLAMMATION
  4. PROGRAF [Suspect]
     Active Substance: TACROLIMUS\TACROLIMUS ANHYDROUS
     Indication: IMMUNOSUPPRESSANT DRUG THERAPY
     Dosage: 0.6 MG, UNKNOWN FREQ.
     Route: 048
     Dates: end: 20090723
  5. PROGRAF [Suspect]
     Active Substance: TACROLIMUS\TACROLIMUS ANHYDROUS
     Dosage: 0.2 MG, TWICE DAILY
     Route: 048
     Dates: start: 20110421, end: 20110502
  6. PROGRAF [Suspect]
     Active Substance: TACROLIMUS\TACROLIMUS ANHYDROUS
     Dosage: 0.2 MG, ONCE DAILY
     Route: 048
     Dates: start: 20110503, end: 20110504
  7. FLOMOX [Concomitant]
     Active Substance: CEFCAPENE PIVOXIL HYDROCHLORIDE HYDRATE
     Indication: UPPER RESPIRATORY TRACT INFLAMMATION
  8. HOKUNALIN [Concomitant]
     Active Substance: TULOBUTEROL
     Indication: GASTROENTERITIS
     Route: 061
     Dates: start: 20110504
  9. AZITHROMYCIN [Concomitant]
     Active Substance: AZITHROMYCIN ANHYDROUS
     Indication: PRODUCT USED FOR UNKNOWN INDICATION
     Dosage: UNK UNK, UNKNOWN FREQ.
     Route: 065
  10. PROGRAF [Suspect]
     Active Substance: TACROLIMUS\TACROLIMUS ANHYDROUS
     Indication: IMMUNOSUPPRESSANT DRUG THERAPY
     Dosage: 0.5 MG, TWICE DAILY
     Route: 048
     Dates: start: 20090724, end: 20110502
  11. PROGRAF [Suspect]
     Active Substance: TACROLIMUS\TACROLIMUS ANHYDROUS
     Dosage: 0.5 MG, TWICE DAILY
     Route: 048
     Dates: start: 20110505, end: 20110506
  12. PYRINAZIN [Concomitant]
     Active Substance: ACETAMINOPHEN
     Indication: GASTROENTERITIS
     Dosage: 0.1 G, TWICE DAILY
     Route: 065
     Dates: start: 20110419, end: 20110425
  13. HOKUNALIN [Concomitant]
     Active Substance: TULOBUTEROL
     Indication: UPPER RESPIRATORY TRACT INFLAMMATION
  14. PROGRAF [Suspect]
     Active Substance: TACROLIMUS\TACROLIMUS ANHYDROUS
     Indication: CONGENITAL ABSENCE OF BILE DUCTS
     Dosage: 0.5 MG, TWICE DAILY
     Route: 048
     Dates: start: 20070605
  15. PREDNISOLONE. [Concomitant]
     Active Substance: PREDNISOLONE
     Indication: PRODUCT USED FOR UNKNOWN INDICATION
     Route: 048
     Dates: start: 20090724
  16. PROGRAF [Suspect]
     Active Substance: TACROLIMUS\TACROLIMUS ANHYDROUS
     Dosage: 0.5 MG, ONCE DAILY
     Route: 048
     Dates: start: 20110503, end: 20110504
  17. PROGRAF [Suspect]
     Active Substance: TACROLIMUS\TACROLIMUS ANHYDROUS
     Dosage: 0.2 MG, TWICE DAILY
     Route: 048
     Dates: start: 20090724
  18. LAC B [Concomitant]
     Active Substance: BIFIDOBACTERIUM SPP.
     Indication: GASTROENTERITIS
     Dosage: 0.4 G, THRICE DAILY
     Route: 065
     Dates: start: 20110419, end: 20110504
  19. PROGRAF [Suspect]
     Active Substance: TACROLIMUS\TACROLIMUS ANHYDROUS
     Dosage: 0.2 MG, TWICE DAILY
     Route: 048
     Dates: start: 20110505, end: 20110506
  20. FLOMOX [Concomitant]
     Active Substance: CEFCAPENE PIVOXIL HYDROCHLORIDE HYDRATE
     Indication: GASTROENTERITIS
     Route: 065
     Dates: start: 20110419, end: 20110504
  21. LAC B [Concomitant]
     Active Substance: BIFIDOBACTERIUM SPP.
     Indication: UPPER RESPIRATORY TRACT INFLAMMATION
  22. MUCODYNE [Concomitant]
     Active Substance: CARBOCYSTEINE
     Indication: GASTROENTERITIS
     Route: 048
     Dates: start: 20110428, end: 20110504

REACTIONS (4)
  - Otitis media acute [Unknown]
  - Drug level increased [Recovered/Resolved]
  - Gastroenteritis [Unknown]
  - Upper respiratory tract inflammation [Unknown]

NARRATIVE: CASE EVENT DATE: 20110412
